FAERS Safety Report 4540341-0 (Version None)
Quarter: 2004Q4

REPORT INFORMATION
  Report Type: 
  Country: None (occurrence: None)
  Receive Date: 20041223
  Receipt Date: 20041209
  Transmission Date: 20050328
  Serious: Yes (Other)
  Sender: FDA-Public Use
  Company Number: THYR-10220

PATIENT
  Age: 50 Year

DRUGS (1)
  1. THYROGEN [Suspect]
     Indication: DIAGNOSTIC PROCEDURE

REACTIONS (2)
  - DACRYOSTENOSIS ACQUIRED [None]
  - LACRIMATION INCREASED [None]
